FAERS Safety Report 10206924 (Version 1)
Quarter: 2014Q2

REPORT INFORMATION
  Report Type: Spontaneous
  Country: US (occurrence: None)
  Receive Date: 20140528
  Receipt Date: 20140528
  Transmission Date: 20141212
  Serious: No
  Sender: FDA-Public Use
  Company Number: None

PATIENT
  Age: 70 Year
  Sex: Female
  Weight: 77.11 kg

DRUGS (2)
  1. ANCEF [Suspect]
     Indication: MUSCLE DISORDER
     Dosage: 4 DOSES IV Q 8 HOURS INTO A VEIN
     Route: 042
     Dates: start: 20140418, end: 20140419
  2. ANCEF [Suspect]
     Indication: SURGERY
     Dosage: 4 DOSES IV Q 8 HOURS INTO A VEIN
     Route: 042
     Dates: start: 20140418, end: 20140419

REACTIONS (3)
  - Skin exfoliation [None]
  - Gastrointestinal disorder [None]
  - Post procedural complication [None]
